FAERS Safety Report 21424189 (Version 1)
Quarter: 2022Q4

REPORT INFORMATION
  Report Type: Spontaneous
  Country: US (occurrence: US)
  Receive Date: 20221007
  Receipt Date: 20221007
  Transmission Date: 20230112
  Serious: Yes (Other)
  Sender: FDA-Public Use
  Company Number: US-MYLANLABS-2022M1111371

PATIENT
  Sex: Female

DRUGS (6)
  1. MONTELUKAST [Suspect]
     Active Substance: MONTELUKAST SODIUM
     Indication: NSAID exacerbated respiratory disease
     Dosage: UNK
     Route: 065
  2. MONTELUKAST [Suspect]
     Active Substance: MONTELUKAST SODIUM
     Indication: Asthma
  3. PREDNISONE [Suspect]
     Active Substance: PREDNISONE
     Indication: NSAID exacerbated respiratory disease
     Dosage: UNK
     Route: 065
  4. PREDNISONE [Suspect]
     Active Substance: PREDNISONE
     Indication: Asthma
  5. ZILEUTON [Suspect]
     Active Substance: ZILEUTON
     Indication: NSAID exacerbated respiratory disease
     Dosage: UNK
     Route: 065
  6. ZILEUTON [Suspect]
     Active Substance: ZILEUTON
     Indication: Asthma

REACTIONS (1)
  - Treatment failure [Unknown]
